FAERS Safety Report 7620397-9 (Version None)
Quarter: 2011Q3

REPORT INFORMATION
  Report Type: 
  Country: None (occurrence: None)
  Receive Date: 20110718
  Receipt Date: 20110718
  Transmission Date: 20111222
  Serious: Yes (Other)
  Sender: FDA-Public Use
  Company Number: None

PATIENT
  Sex: Female

DRUGS (1)
  1. LABETALOL HCL [Suspect]
     Indication: HYPERTENSION
     Dosage: 1
     Route: 047
     Dates: start: 20110622, end: 20110708

REACTIONS (4)
  - PRODUCT SUBSTITUTION ISSUE [None]
  - NAUSEA [None]
  - PRODUCT ODOUR ABNORMAL [None]
  - VOMITING [None]
